FAERS Safety Report 12404523 (Version 2)
Quarter: 2016Q2

REPORT INFORMATION
  Report Type: Spontaneous
  Country: US (occurrence: US)
  Receive Date: 20160525
  Receipt Date: 20160530
  Transmission Date: 20160815
  Serious: No
  Sender: FDA-Public Use
  Company Number: US-PFIZER INC-2016248313

PATIENT
  Age: 60 Year
  Sex: Male

DRUGS (1)
  1. HYDROCORTISONE/NEOMYCIN SULFATE/POLYMYXIN B SULFATE [Suspect]
     Active Substance: HYDROCORTISONE\NEOMYCIN SULFATE\POLYMYXIN B SULFATE
     Indication: EXCESSIVE CERUMEN PRODUCTION
     Dosage: 4 GTT, 3X/DAY
     Dates: start: 20080605, end: 20080616

REACTIONS (4)
  - Erythema [Recovered/Resolved]
  - Instillation site erythema [None]
  - Pruritus [Recovered/Resolved]
  - Instillation site pruritus [None]

NARRATIVE: CASE EVENT DATE: 20080616
